FAERS Safety Report 9248643 (Version 1)
Quarter: 2013Q2

REPORT INFORMATION
  Report Type: Report from Study
  Country: BR (occurrence: BR)
  Receive Date: 20130423
  Receipt Date: 20130423
  Transmission Date: 20140414
  Serious: Yes (Other)
  Sender: FDA-Public Use
  Company Number: BR-ROCHE-1214677

PATIENT
  Sex: Male
  Weight: 76 kg

DRUGS (2)
  1. INTERFERON ALFA-2A [Suspect]
     Indication: PRODUCT USED FOR UNKNOWN INDICATION
     Route: 065
     Dates: start: 201101
  2. RIBAVIRIN [Suspect]
     Indication: PRODUCT USED FOR UNKNOWN INDICATION
     Route: 065

REACTIONS (8)
  - Renal failure [Unknown]
  - Asthenia [Unknown]
  - Hypertension [Unknown]
  - Confusional state [Unknown]
  - Dizziness [Unknown]
  - Nervousness [Unknown]
  - Eating disorder [Unknown]
  - Weight decreased [Unknown]
